FAERS Safety Report 4873775-5 (Version None)
Quarter: 2006Q1

REPORT INFORMATION
  Report Type: 
  Country: None (occurrence: None)
  Receive Date: 20060103
  Receipt Date: 20060103
  Transmission Date: 20060701
  Serious: Yes (Other)
  Sender: FDA-Public Use
  Company Number: None

PATIENT
  Age: 88 Year
  Sex: Female

DRUGS (1)
  1. ACETAMINOPHEN AND OXYCODONE TABLETS [Suspect]
     Indication: HIP FRACTURE
     Dates: start: 20050401, end: 20050411

REACTIONS (3)
  - BLOOD BILIRUBIN INCREASED [None]
  - ENCEPHALOPATHY [None]
  - MENTAL STATUS CHANGES [None]
